FAERS Safety Report 4735755-X (Version None)
Quarter: 2005Q3

REPORT INFORMATION
  Report Type: 
  Country: None (occurrence: None)
  Receive Date: 20050805
  Receipt Date: 20050721
  Transmission Date: 20060218
  Serious: Yes (Other)
  Sender: FDA-Public Use
  Company Number: US-JNJFOC-20050705018

PATIENT
  Age: 63 Year
  Sex: Male
  Weight: 90.72 kg

DRUGS (16)
  1. TOPAMAX [Suspect]
     Route: 048
     Dates: start: 20021101, end: 20050101
  2. TOPAMAX [Suspect]
     Dosage: (TITRATED UP TO 175 MG)
     Route: 048
     Dates: start: 20021101, end: 20050101
  3. ASPIRIN [Concomitant]
     Indication: ANTICOAGULANT THERAPY
  4. FOSAMAX [Concomitant]
     Indication: OSTEOPOROSIS
  5. NASACORT [Concomitant]
  6. PROVENTIL [Concomitant]
     Indication: ASTHMA
  7. PROVIGIL [Concomitant]
  8. SEREVENT [Concomitant]
     Indication: ASTHMA
  9. SINGULAIR [Concomitant]
     Indication: ASTHMA
  10. VIAGRA [Concomitant]
  11. VITAMIN D [Concomitant]
     Indication: NUTRITIONAL SUPPORT
  12. VITAMIN SUPPLEMENT [Concomitant]
  13. FOLIC ACID [Concomitant]
  14. ENTEX CAP [Concomitant]
  15. ENTEX CAP [Concomitant]
  16. ENTEX CAP [Concomitant]

REACTIONS (16)
  - ABNORMAL SENSATION IN EYE [None]
  - AFFECT LABILITY [None]
  - CONFUSIONAL STATE [None]
  - DEHYDRATION [None]
  - DIARRHOEA [None]
  - FEELING JITTERY [None]
  - FOOT FRACTURE [None]
  - LACRIMATION INCREASED [None]
  - METABOLIC ACIDOSIS [None]
  - MYOPIA [None]
  - NAUSEA [None]
  - OSTEOMALACIA [None]
  - RASH MACULAR [None]
  - VISION BLURRED [None]
  - VOMITING [None]
  - WEIGHT DECREASED [None]
